FAERS Safety Report 8943705 (Version 2)
Quarter: 2013Q3

REPORT INFORMATION
  Report Type: Report from Study
  Country: AU (occurrence: AU)
  Receive Date: 20121204
  Receipt Date: 20130924
  Transmission Date: 20140515
  Serious: Yes (Other)
  Sender: FDA-Public Use
  Company Number: PHHY2012AU110847

PATIENT
  Age: 90 Year
  Sex: Female

DRUGS (5)
  1. ACLASTA [Suspect]
     Dosage: 5 MG, UNK
     Route: 042
     Dates: start: 20111027
  2. CANDESARTAN [Concomitant]
     Dosage: 16 MG, UNK
     Route: 048
  3. METOPROLOL [Concomitant]
     Dosage: 50 MG, BID
     Route: 048
  4. SIMVASTATIN [Concomitant]
     Dosage: 40 MG, QD
     Route: 048
  5. PANTOPRAZOL [Concomitant]
     Dosage: 20 MG, QD
     Route: 048

REACTIONS (2)
  - Blood alkaline phosphatase increased [Recovering/Resolving]
  - Alanine aminotransferase increased [Unknown]
